FAERS Safety Report 9034649 (Version 1)
Quarter: 2013Q1

REPORT INFORMATION
  Report Type: Spontaneous
  Country: US (occurrence: None)
  Receive Date: 20130111
  Receipt Date: 20130111
  Transmission Date: 20140127
  Serious: Yes (Hospitalization)
  Sender: FDA-Public Use
  Company Number: 2013-00029

PATIENT
  Age: 18 Year
  Sex: Male

DRUGS (2)
  1. LEVETIRACETAM (UNKNOWN) (LEVETIRACETAM) [Suspect]
     Indication: CONVULSION
     Dosage: (500 MG,2 IN 1 D)
  2. PHENYTOIN EXTENDED RELEASE (UNKNOWN) [Suspect]
     Indication: CONVULSION

REACTIONS (1)
  - Drug reaction with eosinophilia and systemic symptoms [None]
